FAERS Safety Report 8797422 (Version 2)
Quarter: 2015Q1

REPORT INFORMATION
  Report Type: Report from Study
  Country: US (occurrence: US)
  Receive Date: 20120919
  Receipt Date: 20150302
  Transmission Date: 20150721
  Serious: Yes (Death)
  Sender: FDA-Public Use
  Company Number: US-ROCHE-1101907

PATIENT
  Sex: Male

DRUGS (7)
  1. GEMZAR [Concomitant]
     Active Substance: GEMCITABINE HYDROCHLORIDE
     Route: 065
  2. ANZEMET [Concomitant]
     Active Substance: DOLASETRON MESYLATE
     Route: 065
  3. DEXAMETHASONE SODIUM PHOSPHATE. [Concomitant]
     Active Substance: DEXAMETHASONE SODIUM PHOSPHATE
     Dosage: 10 MG/ML.
     Route: 065
  4. ZANTAC [Concomitant]
     Active Substance: RANITIDINE HYDROCHLORIDE
  5. AVASTIN [Suspect]
     Active Substance: BEVACIZUMAB
     Indication: MALIGNANT NEOPLASM OF PLEURA
     Route: 042
     Dates: start: 20090731
  6. ARANESP [Concomitant]
     Active Substance: DARBEPOETIN ALFA
  7. NAVELBINE [Concomitant]
     Active Substance: VINORELBINE TARTRATE

REACTIONS (4)
  - Off label use [Unknown]
  - Pneumonia [Unknown]
  - Death [Fatal]
  - Speech disorder [Unknown]
